FAERS Safety Report 10686947 (Version 4)
Quarter: 2015Q1

REPORT INFORMATION
  Report Type: Spontaneous
  Country: NL (occurrence: NL)
  Receive Date: 20150102
  Receipt Date: 20150121
  Transmission Date: 20150720
  Serious: Yes (Other)
  Sender: FDA-Public Use
  Company Number: NL-BEH-2013038235

PATIENT
  Age: 29 Year
  Sex: Female

DRUGS (1)
  1. RHOPHYLAC [Suspect]
     Active Substance: HUMAN RHO(D) IMMUNE GLOBULIN
     Indication: PROPHYLAXIS
     Dates: start: 20130806

REACTIONS (8)
  - Meconium in amniotic fluid [Unknown]
  - Vulvovaginal mycotic infection [Recovered/Resolved]
  - Exposure during pregnancy [None]
  - Dyspnoea [Recovered/Resolved]
  - Postpartum haemorrhage [Unknown]
  - Rash [Recovered/Resolved]
  - Rash macular [Recovered/Resolved]
  - Pyrexia [Recovered/Resolved]

NARRATIVE: CASE EVENT DATE: 20130809
